FAERS Safety Report 23091499 (Version 1)
Quarter: 2023Q4

REPORT INFORMATION
  Report Type: Report from Study
  Country: FR (occurrence: FR)
  Receive Date: 20231020
  Receipt Date: 20231020
  Transmission Date: 20240110
  Serious: Yes (Hospitalization, Other)
  Sender: FDA-Public Use
  Company Number: FR-BoehringerIngelheim-2023-BI-261384

PATIENT
  Age: 76 Year
  Sex: Male
  Weight: 70 kg

DRUGS (15)
  1. EMPAGLIFLOZIN [Suspect]
     Active Substance: EMPAGLIFLOZIN
     Indication: Acute myocardial infarction
     Route: 048
     Dates: start: 20220326
  2. MEXILETINE [Concomitant]
     Active Substance: MEXILETINE
     Indication: Arrhythmia
     Route: 048
     Dates: start: 20230802
  3. EZETIMIBE [Concomitant]
     Active Substance: EZETIMIBE
     Indication: Hypercholesterolaemia
     Route: 048
  4. AMIODARONE [Concomitant]
     Active Substance: AMIODARONE
     Indication: Arrhythmia
     Dosage: MEDICATION IS STILL ONGOING
     Route: 048
     Dates: start: 20220330
  5. FLUINDIONE [Concomitant]
     Active Substance: FLUINDIONE
     Indication: Cardiac valve prosthesis user
     Route: 048
     Dates: start: 20220330, end: 20230907
  6. SACUBITRIL [Concomitant]
     Active Substance: SACUBITRIL
     Indication: Cardiac failure
     Route: 048
     Dates: start: 20220331
  7. POTASSIUM CHLORIDE [Concomitant]
     Active Substance: POTASSIUM CHLORIDE
     Indication: Hypokalaemia
     Route: 048
     Dates: start: 20220401
  8. ATORVASTATIN [Concomitant]
     Active Substance: ATORVASTATIN
     Indication: Hypercholesterolaemia
     Route: 048
  9. PERMIXION [Concomitant]
     Indication: Benign prostatic hyperplasia
     Route: 048
  10. METFORMIN HYDROCHLORIDE [Concomitant]
     Active Substance: METFORMIN HYDROCHLORIDE
     Indication: Diabetes mellitus
     Route: 048
     Dates: start: 20220324
  11. VALSARTAN [Concomitant]
     Active Substance: VALSARTAN
     Indication: Cardiac failure
     Route: 048
     Dates: start: 20220329
  12. EPLERENONE [Concomitant]
     Active Substance: EPLERENONE
     Indication: Cardiac failure
     Route: 048
     Dates: start: 20220330
  13. ESOMEPRAZOLE [Concomitant]
     Active Substance: ESOMEPRAZOLE
     Indication: Gastrointestinal disorder prophylaxis
     Route: 048
     Dates: start: 20230701
  14. CLOPIDOGREL [Concomitant]
     Active Substance: CLOPIDOGREL BISULFATE
     Indication: Myocardial ischaemia
     Route: 048
     Dates: start: 20230719, end: 20230911
  15. PROPRANOLOL [Concomitant]
     Active Substance: PROPRANOLOL HYDROCHLORIDE
     Indication: Myocardial ischaemia
     Route: 048
     Dates: start: 20230801

REACTIONS (4)
  - Urinary retention [Recovered/Resolved with Sequelae]
  - Benign prostatic hyperplasia [Not Recovered/Not Resolved]
  - Anaemia [Not Recovered/Not Resolved]
  - Nephritis [Recovered/Resolved]

NARRATIVE: CASE EVENT DATE: 20230830
